FAERS Safety Report 7638194-7 (Version None)
Quarter: 2011Q3

REPORT INFORMATION
  Report Type: 
  Country: None (occurrence: None)
  Receive Date: 20110727
  Receipt Date: 20110719
  Transmission Date: 20111222
  Serious: Yes (Other)
  Sender: FDA-Public Use
  Company Number: US-JNJFOC-20110709106

PATIENT
  Age: 51 Year
  Sex: Female
  Weight: 63.5 kg

DRUGS (3)
  1. HORMONE NOS [Concomitant]
     Indication: HORMONE REPLACEMENT THERAPY
     Route: 065
  2. CONCERTA [Suspect]
     Route: 048
     Dates: start: 20110716, end: 20110718
  3. CONCERTA [Suspect]
     Indication: ATTENTION DEFICIT/HYPERACTIVITY DISORDER
     Dosage: 18 MG TWICE A DAY
     Route: 048
     Dates: start: 20110719

REACTIONS (1)
  - EYE HAEMORRHAGE [None]
